FAERS Safety Report 6781953-3 (Version None)
Quarter: 2010Q2

REPORT INFORMATION
  Report Type: 
  Country: None (occurrence: None)
  Receive Date: 20100618
  Receipt Date: 20100618
  Transmission Date: 20101027
  Serious: Yes (Hospitalization)
  Sender: FDA-Public Use
  Company Number: None

PATIENT
  Age: 52 Year
  Sex: Male
  Weight: 63.05 kg

DRUGS (2)
  1. ASPIRIN [Suspect]
     Dosage: 325 MG EVERY DAY PO
     Route: 048
     Dates: start: 20100301, end: 20100329
  2. IBUPROFEN [Suspect]
     Dosage: 600 MG TID PO
     Route: 048
     Dates: end: 20100329

REACTIONS (7)
  - ABDOMINAL PAIN UPPER [None]
  - ANAEMIA [None]
  - BACK PAIN [None]
  - DYSPEPSIA [None]
  - FATIGUE [None]
  - GASTRIC HAEMORRHAGE [None]
  - OESOPHAGEAL ULCER [None]
